FAERS Safety Report 4743927-3 (Version None)
Quarter: 2005Q3

REPORT INFORMATION
  Report Type: 
  Country: None (occurrence: None)
  Receive Date: 20050809
  Receipt Date: 20050621
  Transmission Date: 20060218
  Serious: Yes (Life-Threatening, Other)
  Sender: FDA-Public Use
  Company Number: 805#1#2005-00049

PATIENT
  Age: 90 Year
  Sex: Male

DRUGS (4)
  1. ALPROSTADIL [Suspect]
     Indication: AMPUTATION
     Dosage: 1.120 MCG
     Route: 041
     Dates: start: 20050602, end: 20050613
  2. ARBEKACIN-SULFATE (ARBEKACIN) [Concomitant]
  3. VANCOMYCIN HYDROCHLORIDE [Concomitant]
  4. MEROPENEM-TRIHYDRATE (MEROPEXEM) [Concomitant]

REACTIONS (3)
  - GENERALISED OEDEMA [None]
  - PLEURAL EFFUSION [None]
  - PULMONARY OEDEMA [None]
